FAERS Safety Report 9908040 (Version 1)
Quarter: 2014Q1

REPORT INFORMATION
  Report Type: Spontaneous
  Country: US (occurrence: None)
  Receive Date: 20140214
  Receipt Date: 20140214
  Transmission Date: 20141002
  Serious: No
  Sender: FDA-Public Use
  Company Number: None

PATIENT
  Age: 23 Year
  Sex: Male

DRUGS (4)
  1. PALIPERIDONE [Suspect]
     Route: 030
  2. INVEGA [Concomitant]
  3. ABILIFY [Concomitant]
  4. TRAZADONE [Concomitant]

REACTIONS (2)
  - Tremor [None]
  - Heart rate increased [None]
